FAERS Safety Report 5170153-9 (Version None)
Quarter: 2006Q4

REPORT INFORMATION
  Report Type: 
  Country: None (occurrence: None)
  Receive Date: 20061204
  Receipt Date: 20061116
  Transmission Date: 20070319
  Serious: Yes (Death, Life-Threatening, Hospitalization)
  Sender: FDA-Public Use
  Company Number: 2006SP006618

PATIENT
  Age: 74 Year
  Sex: Female

DRUGS (4)
  1. TEMODAR [Suspect]
     Indication: GLIOBLASTOMA MULTIFORME
     Dosage: 75 MG/M2; PO
     Route: 048
     Dates: start: 20060919, end: 20061030
  2. CLEXANE [Concomitant]
  3. ORIFIRIL [Concomitant]
  4. RADIOTHERAPY [Concomitant]

REACTIONS (8)
  - DEHYDRATION [None]
  - DISTURBANCE IN ATTENTION [None]
  - GENERAL PHYSICAL HEALTH DETERIORATION [None]
  - HYDROCEPHALUS [None]
  - PANCYTOPENIA [None]
  - PNEUMONIA [None]
  - STUPOR [None]
  - URINARY TRACT INFECTION [None]
